FAERS Safety Report 7679448-8 (Version None)
Quarter: 2011Q3

REPORT INFORMATION
  Report Type: 
  Country: None (occurrence: None)
  Receive Date: 20110812
  Receipt Date: 20110805
  Transmission Date: 20111222
  Serious: Yes (Hospitalization)
  Sender: FDA-Public Use
  Company Number: TR-B.I. PHARMACEUTICALS,INC./RIDGEFIELD-2006-DE-04883GD

PATIENT
  Age: 46 Year
  Sex: Male

DRUGS (2)
  1. SPIRIVA [Suspect]
     Route: 047
  2. SPIRIVA [Suspect]
     Indication: CHRONIC OBSTRUCTIVE PULMONARY DISEASE
     Route: 055

REACTIONS (4)
  - ACCIDENTAL EXPOSURE [None]
  - VISUAL ACUITY REDUCED [None]
  - EYE PAIN [None]
  - ANGLE CLOSURE GLAUCOMA [None]
